FAERS Safety Report 9506072 (Version 1)
Quarter: 2013Q1

REPORT INFORMATION
  Report Type: Spontaneous
  Country: US (occurrence: None)
  Receive Date: 20130305
  Receipt Date: 20130305
  Transmission Date: 20140127
  Serious: Yes (Other)
  Sender: FDA-Public Use
  Company Number: 163-21880-12022035

PATIENT
  Age: 47 Year
  Sex: Female
  Weight: 71.22 kg

DRUGS (1)
  1. REVLIMID [Suspect]
     Indication: PLASMA CELL MYELOMA
     Dosage: 15 MG, CAPSULE, 21/7, PO, TEMP INTERRUPTED
     Dates: start: 20110209

REACTIONS (1)
  - Overdose [None]
